FAERS Safety Report 23400212 (Version 1)
Quarter: 2024Q1

REPORT INFORMATION
  Report Type: Spontaneous
  Country: CA (occurrence: CA)
  Receive Date: 20240114
  Receipt Date: 20240114
  Transmission Date: 20240410
  Serious: Yes (Other)
  Sender: FDA-Public Use
  Company Number: CA-SANDOZ-SDZ2024CA002395

PATIENT

DRUGS (5)
  1. DICLOFENAC [Suspect]
     Active Substance: DICLOFENAC
     Indication: Product used for unknown indication
     Dosage: UNK
     Route: 065
  2. CELECOXIB [Concomitant]
     Active Substance: CELECOXIB
     Indication: Product used for unknown indication
     Dosage: UNK
     Route: 065
  3. ESTRADIOL [Concomitant]
     Active Substance: ESTRADIOL
     Indication: Product used for unknown indication
     Dosage: UNK
     Route: 065
  4. IBUPROFEN [Concomitant]
     Active Substance: IBUPROFEN
     Indication: Product used for unknown indication
     Dosage: UNK
     Route: 065
  5. NAPROXEN [Concomitant]
     Active Substance: NAPROXEN
     Indication: Product used for unknown indication
     Dosage: UNK
     Route: 065

REACTIONS (8)
  - Ankylosing spondylitis [Unknown]
  - Discomfort [Unknown]
  - Fatigue [Unknown]
  - Arthralgia [Unknown]
  - Back pain [Unknown]
  - Joint swelling [Unknown]
  - Musculoskeletal stiffness [Unknown]
  - Neck pain [Unknown]
